FAERS Safety Report 15894932 (Version 1)
Quarter: 2019Q1

REPORT INFORMATION
  Report Type: Spontaneous
  Country: GB (occurrence: GB)
  Receive Date: 20190131
  Receipt Date: 20190131
  Transmission Date: 20190417
  Serious: Yes (Other)
  Sender: FDA-Public Use
  Company Number: GB-ASTRAZENECA-2019SE16839

PATIENT
  Sex: Female
  Weight: 60 kg

DRUGS (7)
  1. FOSTAIR [Concomitant]
     Active Substance: BECLOMETHASONE\FORMOTEROL
  2. TIOTROPIUM BROMIDE [Concomitant]
     Active Substance: TIOTROPIUM BROMIDE
     Dosage: TWICE A DAY. DISCONTINUED.
  3. PARACETAMOL [Concomitant]
     Active Substance: ACETAMINOPHEN
     Dosage: RARELY
  4. THYROXINE [Concomitant]
     Active Substance: LEVOTHYROXINE
     Dosage: 100/75 MICROGRAMS.
  5. EKLIRA GENUAIR [Suspect]
     Active Substance: ACLIDINIUM BROMIDE
     Indication: ASTHMA
     Route: 055
     Dates: start: 20190114, end: 20190115
  6. GLUCOSAMINE [Concomitant]
     Active Substance: GLUCOSAMINE
  7. OMEGA-3 FISH OIL [Concomitant]
     Active Substance: FISH OIL\OMEGA-3 FATTY ACIDS

REACTIONS (7)
  - Abdominal pain upper [Recovered/Resolved]
  - Cold sweat [Unknown]
  - Diarrhoea [Recovering/Resolving]
  - Palpitations [Recovering/Resolving]
  - Nausea [Recovered/Resolved]
  - Urinary tract discomfort [Recovering/Resolving]
  - Feeling of body temperature change [Unknown]

NARRATIVE: CASE EVENT DATE: 20190114
